FAERS Safety Report 16978193 (Version 8)
Quarter: 2020Q2

REPORT INFORMATION
  Report Type: Report from Study
  Country: CO (occurrence: CO)
  Receive Date: 20191031
  Receipt Date: 20200601
  Transmission Date: 20200713
  Serious: Yes (Other)
  Sender: FDA-Public Use
  Company Number: CO-SA-2019SA267419

PATIENT

DRUGS (1)
  1. ALEMTUZUMAB [Suspect]
     Active Substance: ALEMTUZUMAB
     Indication: MULTIPLE SCLEROSIS
     Dosage: 12 MG, QD
     Route: 041
     Dates: start: 20190918, end: 20190920

REACTIONS (7)
  - Hemiparesis [Recovered/Resolved]
  - Crystalluria [Recovered/Resolved]
  - Discomfort [Unknown]
  - Peripheral swelling [Unknown]
  - Lymphocyte count decreased [Not Recovered/Not Resolved]
  - Rash pruritic [Unknown]
  - Constipation [Unknown]

NARRATIVE: CASE EVENT DATE: 20190920
